FAERS Safety Report 21057983 (Version 1)
Quarter: 2022Q3

REPORT INFORMATION
  Report Type: Spontaneous
  Country: CN (occurrence: CN)
  Receive Date: 20220708
  Receipt Date: 20220708
  Transmission Date: 20221026
  Serious: Yes (Disabling)
  Sender: FDA-Public Use
  Company Number: CN-NOVARTISPH-NVSC2022CN153058

PATIENT
  Age: 11 Year
  Sex: Female
  Weight: 27 kg

DRUGS (4)
  1. EXJADE [Suspect]
     Active Substance: DEFERASIROX
     Indication: Blood iron increased
     Dosage: 750 MG, QD
     Route: 048
     Dates: start: 20211001, end: 20220630
  2. EXJADE [Suspect]
     Active Substance: DEFERASIROX
     Dosage: 875 MG, QD
     Route: 065
  3. FERRIPROX [Suspect]
     Active Substance: DEFERIPRONE
     Indication: Blood iron increased
     Dosage: 1 G, TID
     Route: 048
     Dates: start: 20141201, end: 20220627
  4. FERRIPROX [Suspect]
     Active Substance: DEFERIPRONE
     Dosage: 1.5 G, QD
     Route: 065

REACTIONS (3)
  - Hepatic function abnormal [Not Recovered/Not Resolved]
  - Chest discomfort [Not Recovered/Not Resolved]
  - Vomiting [Not Recovered/Not Resolved]

NARRATIVE: CASE EVENT DATE: 20220627
